FAERS Safety Report 4519259-5 (Version None)
Quarter: 2004Q4

REPORT INFORMATION
  Report Type: 
  Country: None (occurrence: None)
  Receive Date: 20041201
  Receipt Date: 20041115
  Transmission Date: 20050328
  Serious: Yes (Hospitalization)
  Sender: FDA-Public Use
  Company Number: ST-2004-008143

PATIENT
  Age: 60 Year
  Sex: Male

DRUGS (4)
  1. OLMETEC [Suspect]
     Indication: HYPERTENSION
     Dosage: 20 MG QD PO
     Route: 048
     Dates: start: 20041029, end: 20041029
  2. PARIET [Suspect]
     Dosage: 10 MG QD PO
     Route: 048
     Dates: start: 20041029, end: 20041029
  3. RINPRAL [Suspect]
     Dosage: 50 MG QD PO
     Route: 048
     Dates: start: 20041029, end: 20041029
  4. METHYCOBIDE [Suspect]
     Dosage: 0.5 MG QD PO
     Route: 048
     Dates: start: 20041029, end: 20041029

REACTIONS (2)
  - ANAPHYLACTIC SHOCK [None]
  - BLOOD PRESSURE IMMEASURABLE [None]
